FAERS Safety Report 4956788-4 (Version None)
Quarter: 2006Q1

REPORT INFORMATION
  Report Type: 
  Country: None (occurrence: None)
  Receive Date: 20060323
  Receipt Date: 20060314
  Transmission Date: 20060701
  Serious: Yes (Death)
  Sender: FDA-Public Use
  Company Number: 2006036009

PATIENT
  Age: 99 Year
  Sex: Female

DRUGS (1)
  1. XALATAN [Suspect]
     Indication: GLAUCOMA
     Dosage: 1.5 MCG (1.5 MCG, 1 IN 1)
     Dates: start: 20050308, end: 20051229

REACTIONS (1)
  - MYOCARDIAL INFARCTION [None]
